FAERS Safety Report 7630025-4 (Version None)
Quarter: 2011Q3

REPORT INFORMATION
  Report Type: 
  Country: None (occurrence: None)
  Receive Date: 20110722
  Receipt Date: 20110713
  Transmission Date: 20111222
  Serious: Yes (Hospitalization)
  Sender: FDA-Public Use
  Company Number: US-SANOFI-AVENTIS-2011SA044894

PATIENT
  Age: 49 Year
  Sex: Male

DRUGS (19)
  1. PROCHLORPERAZINE [Concomitant]
     Indication: VOMITING
     Dosage: EVERY 6 HOURS PRN
     Route: 048
  2. BLINDED THERAPY [Suspect]
     Route: 048
     Dates: start: 20110503, end: 20110508
  3. DEXAMETHASONE [Concomitant]
     Indication: VOMITING
     Dosage: START 12 HOURS AFTER CHEMO X 3 DAYS
     Route: 048
  4. DOCETAXEL [Suspect]
     Indication: HEAD AND NECK CANCER
     Route: 041
     Dates: start: 20110412, end: 20110412
  5. DOCETAXEL [Suspect]
     Route: 041
     Dates: start: 20110615, end: 20110615
  6. PROCHLORPERAZINE [Concomitant]
     Indication: NAUSEA
     Dosage: EVERY 6 HOURS PRN
     Route: 048
  7. BLINDED THERAPY [Suspect]
     Indication: HEAD AND NECK CANCER
     Route: 048
     Dates: start: 20110601, end: 20110625
  8. BLINDED THERAPY [Suspect]
     Route: 048
     Dates: start: 20110511, end: 20110529
  9. ONDANSETRON [Concomitant]
     Indication: NAUSEA
     Dosage: START 12 HOURS AFTER CHEMO X 2 DAYS, THEN Q6-8HOURS PRN
     Route: 048
  10. SENNA [Concomitant]
     Indication: CONSTIPATION
     Route: 048
  11. BLINDED THERAPY [Suspect]
     Route: 048
     Dates: start: 20110412, end: 20110502
  12. CISPLATIN [Suspect]
     Route: 041
     Dates: start: 20110615, end: 20110615
  13. DEXAMETHASONE [Concomitant]
     Indication: NAUSEA
     Dosage: START 12 HOURS AFTER CHEMO X 3 DAYS
     Route: 048
  14. ONDANSETRON [Concomitant]
     Indication: VOMITING
     Dosage: START 12 HOURS AFTER CHEMO X 2 DAYS, THEN Q6-8HOURS PRN
     Route: 048
  15. HYCODAN /CAN/ [Concomitant]
     Indication: COUGH
     Dosage: TWICE DAILY AS NEEDED
     Route: 048
  16. CISPLATIN [Suspect]
     Indication: HEAD AND NECK CANCER
     Route: 041
     Dates: start: 20110412, end: 20110412
  17. DIPHENHYDRAMINE HYDROCHLORIDE [Concomitant]
     Dosage: DOSE:2 TEASPOON(S)
     Route: 048
  18. DILAUDID [Concomitant]
     Indication: PAIN
     Route: 048
  19. GABAPENTIN [Concomitant]
     Route: 048

REACTIONS (7)
  - HYPOKALAEMIA [None]
  - HYPONATRAEMIA [None]
  - DIARRHOEA [None]
  - NAUSEA [None]
  - HYPOMAGNESAEMIA [None]
  - DEHYDRATION [None]
  - VOMITING [None]
